FAERS Safety Report 5509194-8 (Version None)
Quarter: 2007Q4

REPORT INFORMATION
  Report Type: 
  Country: None (occurrence: None)
  Receive Date: 20071031
  Receipt Date: 20070626
  Transmission Date: 20080405
  Serious: No
  Sender: FDA-Public Use
  Company Number: 2007PV033066

PATIENT
  Age: 52 Year
  Sex: Female

DRUGS (4)
  1. SYMLIN [Suspect]
     Indication: TYPE 1 DIABETES MELLITUS
     Dosage: 168 MCG;TID;SC  60 MCG;TID;SC  45 MCG;TID;SC   30 MCG;TID;SC   15 MCG;TID;SC
     Route: 058
     Dates: end: 20070624
  2. SYMLIN [Suspect]
     Indication: TYPE 1 DIABETES MELLITUS
     Dosage: 168 MCG;TID;SC  60 MCG;TID;SC  45 MCG;TID;SC   30 MCG;TID;SC   15 MCG;TID;SC
     Route: 058
     Dates: start: 20051201
  3. LANTUS [Concomitant]
  4. HUMALOG [Concomitant]

REACTIONS (4)
  - BLOOD GLUCOSE DECREASED [None]
  - BLOOD GLUCOSE INCREASED [None]
  - GASTROINTESTINAL SOUNDS ABNORMAL [None]
  - WEIGHT INCREASED [None]
